FAERS Safety Report 9508337 (Version 1)
Quarter: 2013Q3

REPORT INFORMATION
  Report Type: Spontaneous
  Country: US (occurrence: US)
  Receive Date: 20130909
  Receipt Date: 20130909
  Transmission Date: 20140515
  Serious: No
  Sender: FDA-Public Use
  Company Number: US-PFIZER INC-2013258337

PATIENT
  Age: 53 Year
  Sex: Male
  Weight: 77.1 kg

DRUGS (3)
  1. LYRICA [Suspect]
     Indication: NEURALGIA
     Dosage: UNK, 2X/DAY
     Dates: start: 201308
  2. LYRICA [Suspect]
     Dosage: (75MG IN MORNING AND 150MG IN NIGHT ) UNK, 2X/DAY
     Dates: start: 201308, end: 201309
  3. TYLENOL [Suspect]
     Indication: NEURALGIA
     Dosage: UNK

REACTIONS (3)
  - Neuralgia [Unknown]
  - Insomnia [Unknown]
  - Drug ineffective [Unknown]
